FAERS Safety Report 8124898-9 (Version None)
Quarter: 2012Q1

REPORT INFORMATION
  Report Type: 
  Country: None (occurrence: None)
  Receive Date: 20120209
  Receipt Date: 20120202
  Transmission Date: 20120608
  Serious: Yes (Other)
  Sender: FDA-Public Use
  Company Number: IT-PFIZER INC-2012020227

PATIENT
  Age: 82 Year
  Sex: Male

DRUGS (4)
  1. FUROSEMIDE [Concomitant]
     Route: 065
  2. ACETYLSALICYLIC ACID [Concomitant]
     Route: 065
  3. CORDARONE [Suspect]
     Indication: PRODUCT USED FOR UNKNOWN INDICATION
     Dosage: 200 MG DAILY
     Route: 048
     Dates: start: 20101124, end: 20111123
  4. AMLODIPINE BESILATE [Concomitant]
     Route: 065

REACTIONS (1)
  - PRESYNCOPE [None]
